FAERS Safety Report 7233048-2 (Version None)
Quarter: 2011Q1

REPORT INFORMATION
  Report Type: 
  Country: None (occurrence: None)
  Receive Date: 20110119
  Receipt Date: 20110110
  Transmission Date: 20110831
  Serious: Yes (Other)
  Sender: FDA-Public Use
  Company Number: PHHY2010CA06754

PATIENT
  Sex: Female

DRUGS (4)
  1. SYNTHROID [Concomitant]
     Dosage: 0.025 MG, UNK
  2. ALISKIREN [Suspect]
     Indication: HYPERTENSION
     Dosage: 150 MG, DAILY
     Route: 048
     Dates: start: 20070511
  3. MICARDIS HCT [Concomitant]
     Dosage: 80/12.5
  4. NORVASC [Concomitant]
     Dosage: UNK
     Dates: end: 20090706

REACTIONS (2)
  - TREMOR [None]
  - DIZZINESS [None]
